FAERS Safety Report 7153798-6 (Version None)
Quarter: 2010Q4

REPORT INFORMATION
  Report Type: 
  Country: None (occurrence: None)
  Receive Date: 20101129
  Receipt Date: 20101112
  Transmission Date: 20110411
  Serious: Yes (Life-Threatening, Hospitalization, Other)
  Sender: FDA-Public Use
  Company Number: GER/GER/09/0008655

PATIENT
  Age: 29 Year
  Sex: Male
  Weight: 85.7 kg

DRUGS (4)
  1. IBUPROFEN [Suspect]
     Indication: PAIN
     Dosage: 600 MG, 3 IN 1 D, ORAL
     Route: 048
     Dates: start: 20080912
  2. REBETOL [Concomitant]
  3. PEG-INTRON [Concomitant]
  4. KOGENATE [Concomitant]

REACTIONS (14)
  - COLITIS [None]
  - COLONIC POLYP [None]
  - DUODENAL POLYP [None]
  - FALL [None]
  - GASTRIC POLYPS [None]
  - GASTROINTESTINAL HAEMORRHAGE [None]
  - GINGIVAL BLEEDING [None]
  - INTESTINAL POLYP [None]
  - LOSS OF CONSCIOUSNESS [None]
  - PSEUDOPOLYP [None]
  - RECTAL POLYP [None]
  - SHOCK HAEMORRHAGIC [None]
  - SMALL INTESTINAL HAEMORRHAGE [None]
  - TOOTH EXTRACTION [None]
